FAERS Safety Report 21687545 (Version 10)
Quarter: 2023Q2

REPORT INFORMATION
  Report Type: Report from Study
  Country: US (occurrence: US)
  Receive Date: 20221206
  Receipt Date: 20230511
  Transmission Date: 20230721
  Serious: Yes (Other)
  Sender: FDA-Public Use
  Company Number: US-002147023-NVSC2022US282257

PATIENT
  Sex: Male

DRUGS (4)
  1. ENTRESTO [Suspect]
     Active Substance: SACUBITRIL\VALSARTAN
     Indication: Product used for unknown indication
     Dosage: 1 DOSAGE FORM (24/26 MG)
     Route: 065
  2. ENTRESTO [Suspect]
     Active Substance: SACUBITRIL\VALSARTAN
     Dosage: 1 DOSAGE FORM, BID (49/51 MG)
     Route: 048
  3. CARVEDILOL [Suspect]
     Active Substance: CARVEDILOL
     Indication: Product used for unknown indication
     Dosage: UNK
     Route: 065
  4. UNSPECIFIED INGREDIENT [Concomitant]
     Active Substance: UNSPECIFIED INGREDIENT
     Indication: Product used for unknown indication
     Dosage: UNK
     Route: 065

REACTIONS (17)
  - Conjunctival haemorrhage [Unknown]
  - Arthralgia [Unknown]
  - Chest pain [Recovered/Resolved]
  - Peripheral swelling [Unknown]
  - Weight increased [Unknown]
  - Dysstasia [Unknown]
  - Blood chloride increased [Unknown]
  - Hypertension [Unknown]
  - Heart rate decreased [Unknown]
  - Musculoskeletal chest pain [Unknown]
  - Upper respiratory tract infection [Unknown]
  - Asthenia [Unknown]
  - Fatigue [Unknown]
  - Hypotension [Recovered/Resolved]
  - Cough [Unknown]
  - Dizziness [Unknown]
  - Incorrect dose administered [Unknown]
